FAERS Safety Report 23210082 (Version 1)
Quarter: 2023Q4

REPORT INFORMATION
  Report Type: Spontaneous
  Country: TR (occurrence: TR)
  Receive Date: 20231121
  Receipt Date: 20231121
  Transmission Date: 20240110
  Serious: Yes (Other)
  Sender: FDA-Public Use
  Company Number: TR-ASTELLAS-2023US034793

PATIENT
  Age: 71 Year
  Sex: Male

DRUGS (1)
  1. GILTERITINIB [Suspect]
     Active Substance: GILTERITINIB
     Indication: Product used for unknown indication
     Dosage: UNK UNK, UNKNOWN FREQ.
     Route: 065

REACTIONS (1)
  - Pulmonary fibrosis [Unknown]
